FAERS Safety Report 16149304 (Version 1)
Quarter: 2019Q2

REPORT INFORMATION
  Report Type: Spontaneous
  Country: US (occurrence: US)
  Receive Date: 20190402
  Receipt Date: 20190402
  Transmission Date: 20190711
  Serious: Yes (Other)
  Sender: FDA-Public Use
  Company Number: US-ASTRAZENECA-2019SE48784

PATIENT
  Sex: Female

DRUGS (2)
  1. BRILINTA [Suspect]
     Active Substance: TICAGRELOR
     Dosage: 60 MG IN THE MORNING AND 90 MG IN THE EVENING
     Route: 048
  2. ASPIRIN. [Suspect]
     Active Substance: ASPIRIN
     Route: 065

REACTIONS (5)
  - Transient ischaemic attack [Unknown]
  - Fibromuscular dysplasia [Unknown]
  - Off label use [Unknown]
  - Cardiovascular disorder [Unknown]
  - Cough [Unknown]
